FAERS Safety Report 13445397 (Version 2)
Quarter: 2017Q2

REPORT INFORMATION
  Report Type: Report from Study
  Country: None (occurrence: IL)
  Receive Date: 20170415
  Receipt Date: 20170427
  Transmission Date: 20170830
  Serious: Yes (Hospitalization, Other)
  Sender: FDA-Public Use
  Company Number: IL-ABBVIE-17K-082-1941642-00

PATIENT
  Sex: Female

DRUGS (1)
  1. HUMIRA [Suspect]
     Active Substance: ADALIMUMAB
     Indication: RHEUMATOID ARTHRITIS
     Route: 058
     Dates: start: 20160403, end: 20170309

REACTIONS (7)
  - Myocardial infarction [Recovering/Resolving]
  - Respiratory disorder [Unknown]
  - Viral infection [Unknown]
  - Pulmonary oedema [Unknown]
  - Speech disorder [Not Recovered/Not Resolved]
  - Poisoning [Recovering/Resolving]
  - Left ventricular dysfunction [Unknown]

NARRATIVE: CASE EVENT DATE: 2017
